FAERS Safety Report 17300062 (Version 2)
Quarter: 2021Q3

REPORT INFORMATION
  Report Type: Spontaneous
  Country: DE (occurrence: DE)
  Receive Date: 20200122
  Receipt Date: 20210726
  Transmission Date: 20211014
  Serious: Yes (Hospitalization, Other)
  Sender: FDA-Public Use
  Company Number: DE-MYLANLABS-2020M1005144

PATIENT
  Sex: Female

DRUGS (27)
  1. VALPROIC ACID. [Suspect]
     Active Substance: VALPROIC ACID
     Dosage: 1300 ? 2500 MG DAILY
     Route: 048
  2. QUETIAPINE. [Suspect]
     Active Substance: QUETIAPINE
     Dosage: 50?100 MG, DAILY
     Route: 048
     Dates: start: 201310
  3. ERGENYL CHRONO [Suspect]
     Active Substance: VALPROIC ACID
     Indication: BIPOLAR DISORDER
     Dosage: 2300 MILLIGRAM, QD
     Route: 048
     Dates: start: 20140715, end: 20140725
  4. AMLODIPINE [Concomitant]
     Active Substance: AMLODIPINE BESYLATE
     Dosage: 5 MG, QD
  5. NOVORAPID [Concomitant]
     Active Substance: INSULIN ASPART
     Indication: GESTATIONAL DIABETES
     Dosage: 5.5 IU, THROUGHOUT THE DAY
     Route: 058
     Dates: start: 2014
  6. LITHIUM. [Suspect]
     Active Substance: LITHIUM
     Dosage: 900 ? 2250 MG DAILY
     Route: 048
  7. MIRTAZAPINE. [Concomitant]
     Active Substance: MIRTAZAPINE
     Dosage: 30 MG, QD
  8. VALPROIC ACID. [Suspect]
     Active Substance: VALPROIC ACID
     Dosage: UNK UNK, UNK
     Route: 048
  9. VALPROIC ACID. [Suspect]
     Active Substance: VALPROIC ACID
     Dosage: UNK (1000 ? 0 ? 1000)  UNK
     Route: 048
     Dates: start: 20140520, end: 20140524
  10. QUETIAPINE. [Suspect]
     Active Substance: QUETIAPINE
     Dosage: UNK UNK, UNK
  11. LITHIUM. [Suspect]
     Active Substance: LITHIUM
     Dosage: UNK UNK, UNK
  12. L?THYROXIN                         /00068001/ [Concomitant]
     Active Substance: LEVOTHYROXINE
     Dosage: 75 UG, QD
  13. ARIPIPRAZOLE. [Concomitant]
     Active Substance: ARIPIPRAZOLE
     Dosage: 5 MG, QD
  14. LAMOTRIGIN [Concomitant]
     Active Substance: LAMOTRIGINE
     Dosage: 100 MG, QD
  15. VALPROIC ACID. [Suspect]
     Active Substance: VALPROIC ACID
     Dosage: UNK, UNK, QD
     Route: 048
  16. QUETIAPINE. [Suspect]
     Active Substance: QUETIAPINE
     Dosage: 200 MG, UNK
  17. QUETIAPINE. [Suspect]
     Active Substance: QUETIAPINE
     Indication: BIPOLAR DISORDER
     Dosage: UNK UNK, UNK
  18. QUETIAPINE. [Suspect]
     Active Substance: QUETIAPINE
     Dosage: 50 ? 200 MG DAILY
     Route: 048
  19. LITHIUM. [Suspect]
     Active Substance: LITHIUM
     Indication: BIPOLAR DISORDER
     Dosage: LOW DOSE
  20. ARIPIPRAZOLE. [Concomitant]
     Active Substance: ARIPIPRAZOLE
     Dosage: 5 MG, QD
  21. INSULIN HUMAN [Concomitant]
     Active Substance: INSULIN HUMAN
     Indication: GESTATIONAL DIABETES
     Dosage: 6 IU, QD
     Route: 058
     Dates: start: 2014
  22. CITALOPRAM [Concomitant]
     Active Substance: CITALOPRAM HYDROBROMIDE
     Dosage: 20 MG, QD
  23. PANTOPRAZOLE [Concomitant]
     Active Substance: PANTOPRAZOLE
     Dosage: 40 MG, QD
  24. LAMOTRIGIN [Concomitant]
     Active Substance: LAMOTRIGINE
     Dosage: 100 UNK
  25. VALPROIC ACID. [Suspect]
     Active Substance: VALPROIC ACID
     Indication: BIPOLAR DISORDER
     Dosage: 1800 MG, QD
     Route: 048
     Dates: start: 201310
  26. LITHIUM. [Suspect]
     Active Substance: LITHIUM
     Dosage: UNK UNK, UNK
  27. MIRTAZAPINE. [Concomitant]
     Active Substance: MIRTAZAPINE
     Dosage: 30 UNK

REACTIONS (19)
  - Sedation [Unknown]
  - Adverse drug reaction [Unknown]
  - Exposure during pregnancy [Unknown]
  - Blood glucose fluctuation [Unknown]
  - Gestational diabetes [Unknown]
  - Diarrhoea [Unknown]
  - Abdominal pain [Recovered/Resolved]
  - Gastric disorder [Unknown]
  - Abdominal distension [Unknown]
  - Blood glucose increased [Unknown]
  - Sciatica [Unknown]
  - Mania [Unknown]
  - Obesity [Unknown]
  - Polyhydramnios [Unknown]
  - Weight increased [Unknown]
  - Bipolar I disorder [Unknown]
  - Frequent bowel movements [Recovered/Resolved]
  - Constipation [Unknown]
  - Tremor [Unknown]

NARRATIVE: CASE EVENT DATE: 2013
